FAERS Safety Report 9196257 (Version 1)
Quarter: 2013Q1

REPORT INFORMATION
  Report Type: Spontaneous
  Country: US (occurrence: US)
  Receive Date: 20130328
  Receipt Date: 20130328
  Transmission Date: 20140127
  Serious: Yes (Other)
  Sender: FDA-Public Use
  Company Number: US-JNJFOC-20130313241

PATIENT
  Sex: 0

DRUGS (3)
  1. TOPAMAX [Suspect]
     Indication: HEADACHE
     Route: 048
     Dates: end: 2013
  2. TOPAMAX [Suspect]
     Indication: HEADACHE
     Route: 048
     Dates: start: 2013
  3. WARFARIN [Interacting]
     Indication: PRODUCT USED FOR UNKNOWN INDICATION
     Route: 048

REACTIONS (2)
  - International normalised ratio decreased [Recovered/Resolved]
  - Drug interaction [Unknown]
